FAERS Safety Report 5755211-X (Version None)
Quarter: 2008Q2

REPORT INFORMATION
  Report Type: 
  Country: None (occurrence: None)
  Receive Date: 20080602
  Receipt Date: 20071030
  Transmission Date: 20081010
  Serious: Yes (Life-Threatening)
  Sender: FDA-Public Use
  Company Number: AT-NOVOPROD-268771

PATIENT
  Age: 77 Year
  Sex: Female
  Weight: 80 kg

DRUGS (8)
  1. NOVOSEVEN [Suspect]
     Indication: DRUG USE FOR UNKNOWN INDICATION
     Dosage: 14.4 MG, UNK
     Route: 042
     Dates: start: 20071012, end: 20071012
  2. NOVOSEVEN [Suspect]
     Dosage: 6.6 MG, UNK
     Route: 042
     Dates: start: 20071013, end: 20071013
  3. SODIUM CHLORIDE [Concomitant]
     Dosage: 1000 ML, UNK
     Route: 042
  4. DIBONDRIN [Concomitant]
     Dosage: 1 VIAL
  5. SOLUDACORTIN [Concomitant]
     Dosage: 250 MG, UNK
  6. PPI                                /00661201/ [Concomitant]
  7. APREDNISLON [Concomitant]
  8. ENDOXAN                            /00021101/ [Concomitant]
     Dosage: 200 MG, QD

REACTIONS (1)
  - ANAPHYLACTIC REACTION [None]
